FAERS Safety Report 18329135 (Version 2)
Quarter: 2020Q4

REPORT INFORMATION
  Report Type: Spontaneous
  Country: US (occurrence: US)
  Receive Date: 20200930
  Receipt Date: 20201021
  Transmission Date: 20210113
  Serious: Yes (Other)
  Sender: FDA-Public Use
  Company Number: US-PFIZER INC-2020376856

PATIENT
  Age: 82 Year
  Sex: Female
  Weight: 88.44 kg

DRUGS (23)
  1. AREDS [Concomitant]
     Active Substance: MINERALS\VITAMINS
     Dosage: 2 DF, 1X/DAY (2 GEL CAPS AT BREAKFAST)
  2. LEVOXYL [Concomitant]
     Active Substance: LEVOTHYROXINE SODIUM
     Dosage: 137 MG, 1X/DAY (AT EARLY MORNING)
  3. RENA-VITE RX [Concomitant]
     Active Substance: ASCORBIC ACID\BIOTIN\CALCIUM PANTOTHENATE\CYANOCOBALAMIN\FOLIC ACID\NIACINAMIDE\PYRIDOXINE HYDROCHLORIDE\RIBOFLAVIN\THIAMINE MONONITRATE
     Dosage: 1 DF, 1X/DAY, (1 TABLET AT LUNCH)
  4. XANAX [Concomitant]
     Active Substance: ALPRAZOLAM
     Dosage: 1 TABLET UP TO 4 TIMES PER DAY AS NEEDED
  5. LYRICA [Suspect]
     Active Substance: PREGABALIN
     Dosage: 20 MG, DAILY
     Dates: start: 20200919, end: 20200927
  6. ARANESP [Concomitant]
     Active Substance: DARBEPOETIN ALFA
     Dosage: 400 UG, WEEKLY (DURING DIALYSIS)
  7. MIRTAZAPINE. [Concomitant]
     Active Substance: MIRTAZAPINE
     Dosage: 15 MG, 1X/DAY (1 TABLET AT BEDTIME)
  8. YUPELRI [Concomitant]
     Active Substance: REVEFENACIN
     Dosage: 1X/DAY (1 INHALATION IN AFTERNOON)
  9. ZYRTEC [Concomitant]
     Active Substance: CETIRIZINE HYDROCHLORIDE
     Dosage: 10 MG, 1X/DAY (1 TABLET AT BREAKFAST)
  10. LYRICA [Suspect]
     Active Substance: PREGABALIN
     Indication: DIABETIC NEUROPATHY
     Dosage: 50 MG, 3X/DAY
  11. VELPHORO [Concomitant]
     Active Substance: SUCROFERRIC OXYHYDROXIDE
     Dosage: 500 MG WITH MEALS
  12. OMEPRAZOLE. [Concomitant]
     Active Substance: OMEPRAZOLE
     Dosage: 40 MG, 1X/DAY (1 TABLET BEFORE BREAKFAST)
  13. VENOFER [Concomitant]
     Active Substance: IRON SUCROSE
     Dosage: 1 TIME PER WEEK (DURING DIALYSIS)
  14. ALIGN [Concomitant]
     Active Substance: BIFIDOBACTERIUM LONGUM SUBSP. INFANTIS
     Dosage: 1 DF, 1X/DAY,  (1 TABLET AT LUNCH)
  15. LANTUS [Concomitant]
     Active Substance: INSULIN GLARGINE
     Dosage: 12 IU, 1X/DAY (12 UNITS NIGHTLY BEFORE BED)
  16. SENOKOT [Concomitant]
     Active Substance: SENNOSIDES
     Dosage: 1 DF, 1X/DAY (1 TABLET AT BEDTIME)
  17. VITAMIN B COMPLEX [Concomitant]
     Active Substance: CYANOCOBALAMIN\DEXPANTHENOL\NIACINAMIDE\PYRIDOXINE HYDROCHLORIDE\RIBOFLAVIN 5^-PHOSPHATE SODIUM\THIAMINE HYDROCHLORIDE\VITAMIN B COMPLEX
     Dosage: 1 DF, 1X/DAY (1 TABLET AT BREAKFAST)
  18. BUDESONIDE. [Concomitant]
     Active Substance: BUDESONIDE
     Dosage: 1X/DAY (1 INHALATION IN MORNING)
  19. LIPITOR [Concomitant]
     Active Substance: ATORVASTATIN CALCIUM
     Dosage: 20 MG, 1X/DAY (1 TABLET AT DINNER)
  20. MIRALAX [Concomitant]
     Active Substance: POLYETHYLENE GLYCOL 3350
     Dosage: 1X/DAY (1 CAPFUL AT LUNCH)
  21. FOLIC ACID. [Concomitant]
     Active Substance: FOLIC ACID
     Dosage: 1 DF, 1X/DAY (1 TABLET AT BREAKFAST)
  22. NOVOLOG [Concomitant]
     Active Substance: INSULIN ASPART
     Dosage: 28 IU, DAILY (8 UNITS AT BREAKFAST/10 UNITS AT LUNCH AND DINNER)
  23. TRAMADOL HCL [Concomitant]
     Active Substance: TRAMADOL HYDROCHLORIDE
     Dosage: 50 MG, AS NEEDED (1 TABLET PER DAY AS NEEEDED)

REACTIONS (3)
  - Dysarthria [Recovered/Resolved]
  - Dysstasia [Recovered/Resolved]
  - Asthenia [Recovered/Resolved]

NARRATIVE: CASE EVENT DATE: 20200923
